FAERS Safety Report 9990195 (Version 1)
Quarter: 2014Q1

REPORT INFORMATION
  Report Type: Report from Study
  Country: US (occurrence: US)
  Receive Date: 20140310
  Receipt Date: 20140310
  Transmission Date: 20141002
  Serious: No
  Sender: FDA-Public Use
  Company Number: US-ABBVIE-13P-163-1137165-00

PATIENT
  Age: 38 Year
  Sex: Female

DRUGS (16)
  1. HUMIRA [Suspect]
     Indication: CROHN^S DISEASE
     Dates: start: 20130509
  2. NEXIUM [Concomitant]
     Indication: DYSPEPSIA
  3. CLARINEX [Concomitant]
     Indication: HYPERSENSITIVITY
  4. FENOFIBRATE [Concomitant]
     Indication: BLOOD CHOLESTEROL
  5. GLUMEXA [Concomitant]
     Indication: PRODUCT USED FOR UNKNOWN INDICATION
  6. ROPINIROLE [Concomitant]
     Indication: RESTLESS LEGS SYNDROME
  7. ADDERALL [Concomitant]
     Indication: ATTENTION DEFICIT/HYPERACTIVITY DISORDER
  8. LUNESTA [Concomitant]
     Indication: INSOMNIA
     Dosage: 3 MG AT NIGHT AS NEEDED
  9. ABILIFY [Concomitant]
     Indication: BIPOLAR DISORDER
  10. TEGRETOL [Concomitant]
     Indication: BIPOLAR DISORDER
  11. VITAMIN B12 [Concomitant]
     Indication: PRODUCT USED FOR UNKNOWN INDICATION
  12. WOMEN^S HEALTH MULTIVITAMIN [Concomitant]
     Indication: PRODUCT USED FOR UNKNOWN INDICATION
  13. VITAMIN D [Concomitant]
     Indication: PRODUCT USED FOR UNKNOWN INDICATION
  14. CALCIUM [Concomitant]
     Indication: MINERAL SUPPLEMENTATION
  15. IRON [Concomitant]
     Indication: PRODUCT USED FOR UNKNOWN INDICATION
  16. XIFAXAN [Concomitant]
     Indication: PRODUCT USED FOR UNKNOWN INDICATION

REACTIONS (8)
  - Fatigue [Not Recovered/Not Resolved]
  - Emotional disorder [Not Recovered/Not Resolved]
  - Crying [Not Recovered/Not Resolved]
  - Depression [Not Recovered/Not Resolved]
  - Gastric ulcer [Unknown]
  - Diarrhoea [Not Recovered/Not Resolved]
  - Abdominal pain [Unknown]
  - Hepatic enzyme increased [Unknown]
